FAERS Safety Report 4776407-X (Version None)
Quarter: 2005Q3

REPORT INFORMATION
  Report Type: 
  Country: None (occurrence: None)
  Receive Date: 20050921
  Receipt Date: 20050902
  Transmission Date: 20060218
  Serious: Yes (Hospitalization)
  Sender: FDA-Public Use
  Company Number: FR_050907048

PATIENT
  Age: 66 Year
  Sex: Male
  Weight: 74 kg

DRUGS (4)
  1. ALIMTA [Suspect]
     Indication: METASTASIS
     Dosage: 720 MG/1 OTHER
     Dates: start: 20050330
  2. ALIMTA [Suspect]
     Indication: PERITONEAL MESOTHELIOMA MALIGNANT
     Dosage: 720 MG/1 OTHER
     Dates: start: 20050330
  3. VITAMIN B NOS [Concomitant]
  4. SPECIAFOLDINE (FOLIC ACID) [Concomitant]

REACTIONS (7)
  - BILIARY DILATATION [None]
  - CHOLESTASIS [None]
  - HEPATITIS [None]
  - HEPATITIS A ANTIBODY POSITIVE [None]
  - HERPES SIMPLEX SEROLOGY POSITIVE [None]
  - NEUTROPENIA [None]
  - WHITE BLOOD CELL COUNT DECREASED [None]
